FAERS Safety Report 21037052 (Version 2)
Quarter: 2022Q3

REPORT INFORMATION
  Report Type: Spontaneous
  Country: US (occurrence: US)
  Receive Date: 20220702
  Receipt Date: 20220709
  Transmission Date: 20221027
  Serious: No
  Sender: FDA-Public Use
  Company Number: US-SANOFI-01169479

PATIENT
  Age: 69 Year
  Sex: Female

DRUGS (2)
  1. DUPIXENT [Suspect]
     Active Substance: DUPILUMAB
     Indication: Asthma
     Dosage: 600 MG, 1X
     Route: 058
     Dates: start: 20220621, end: 20220621
  2. DUPIXENT [Suspect]
     Active Substance: DUPILUMAB
     Dosage: 300 MG, QOW
     Dates: start: 2022

REACTIONS (2)
  - Injection site pain [Unknown]
  - Device issue [Unknown]

NARRATIVE: CASE EVENT DATE: 20220101
